FAERS Safety Report 9379826 (Version 1)
Quarter: 2013Q3

REPORT INFORMATION
  Report Type: Spontaneous
  Country: US (occurrence: None)
  Receive Date: 20130701
  Receipt Date: 20130701
  Transmission Date: 20140515
  Serious: No
  Sender: FDA-Public Use
  Company Number: None

PATIENT
  Age: 61 Year
  Sex: Male
  Weight: 102 kg

DRUGS (1)
  1. DAPTOMYCIN [Suspect]
     Indication: INFECTION
     Dosage: 600 MG UD IV
     Route: 042
     Dates: start: 20130328, end: 20130330

REACTIONS (1)
  - Interstitial lung disease [None]
